FAERS Safety Report 11177942 (Version 2)
Quarter: 2015Q3

REPORT INFORMATION
  Report Type: Spontaneous
  Country: FR (occurrence: FR)
  Receive Date: 20150610
  Receipt Date: 20150910
  Transmission Date: 20151125
  Serious: Yes (Hospitalization)
  Sender: FDA-Public Use
  Company Number: FR-PFIZER INC-2015190095

PATIENT
  Age: 68 Year
  Sex: Male
  Weight: 126 kg

DRUGS (14)
  1. ESIDREX [Concomitant]
     Active Substance: HYDROCHLOROTHIAZIDE
     Dosage: 12.5 MG, 1X/DAY (IN THE MORNING)
     Route: 048
  2. HYDROXYZINE HYDROCHLORIDE. [Concomitant]
     Active Substance: HYDROXYZINE HYDROCHLORIDE
     Dosage: 25 MG, 1X/DAY (IN THE EVENING)
     Route: 048
  3. SEROPLEX [Concomitant]
     Active Substance: ESCITALOPRAM OXALATE
     Dosage: 10 MG, 1X/DAY (IN THE MORNING)
     Route: 048
  4. ZYVOXID [Suspect]
     Active Substance: LINEZOLID
     Indication: STREPTOCOCCAL INFECTION
     Dosage: 600 MG, 2X/DAY (MORNING AND EVENING)
     Route: 048
     Dates: start: 20150403, end: 20150422
  5. LASILIX [Concomitant]
     Active Substance: FUROSEMIDE
     Dosage: 80 MG, 1X/DAY (IN THE MORNING)
     Route: 048
  6. AMIODARONE HYDROCHLORIDE. [Concomitant]
     Active Substance: AMIODARONE HYDROCHLORIDE
     Dosage: 200 MG, 1X/DAY (IN THE MORNING, EXCEPT DURING WEEKENDS)
     Route: 048
  7. TRAMADOL HYDROCHLORIDE. [Concomitant]
     Active Substance: TRAMADOL HYDROCHLORIDE
     Dosage: 50 MG, 3X/DAY ((MORNING MIDDAY AND EVENING)
     Route: 048
  8. INEXIUM [Concomitant]
     Active Substance: ESOMEPRAZOLE
     Dosage: 20 MG, 1X/DAY (IN THE EVENING)
     Route: 048
  9. PARACETAMOL [Concomitant]
     Active Substance: ACETAMINOPHEN
     Dosage: 1000 MG, 3X/DAY (MORNING MIDDAY EVENING)
     Route: 048
  10. SECTRAL [Concomitant]
     Active Substance: ACEBUTOLOL HYDROCHLORIDE
     Dosage: 100 MG, 1X/DAY (IN THE MORNING)
     Route: 048
  11. HUMALOG [Concomitant]
     Active Substance: INSULIN LISPRO
     Dosage: 62 IU, DAILY (23 IU IN THE MORNING, 21 IU AT MIDDAY AND 18 IU IN THE EVENING)
     Route: 058
  12. TAVANIC [Suspect]
     Active Substance: LEVOFLOXACIN
     Indication: STAPHYLOCOCCAL INFECTION
     Dosage: 500 MG, ALTERNATE DAY (EVERY OTHER DAY)
     Route: 048
     Dates: start: 20150403, end: 20150422
  13. LANTUS [Concomitant]
     Active Substance: INSULIN GLARGINE
     Dosage: 78 IU, DAILY  (28 IU IN THE MORNING AND 50 IU IN THE EVENING)
     Route: 058
  14. PREVISCAN [Concomitant]
     Active Substance: FLUINDIONE
     Dosage: 25 MG, 1X/DAY (IN THE EVENING)
     Route: 048

REACTIONS (2)
  - Anaemia [Recovered/Resolved]
  - Condition aggravated [Recovered/Resolved]

NARRATIVE: CASE EVENT DATE: 20150420
